FAERS Safety Report 9199395 (Version 3)
Quarter: 2013Q4

REPORT INFORMATION
  Report Type: Spontaneous
  Country: US (occurrence: US)
  Receive Date: 20130329
  Receipt Date: 20131028
  Transmission Date: 20140711
  Serious: No
  Sender: FDA-Public Use
  Company Number: US-009507513-1303USA013518

PATIENT
  Age: 59 Year
  Sex: Male

DRUGS (3)
  1. VICTRELIS [Suspect]
     Indication: HEPATITIS C
     Dosage: UNK
     Route: 048
     Dates: start: 20121211, end: 20131014
  2. REBETOL [Suspect]
     Indication: HEPATITIS C
     Dosage: UNK
     Route: 048
     Dates: start: 20121113, end: 20131014
  3. PEGASYS [Suspect]
     Indication: HEPATITIS C
     Dosage: UNK
     Dates: start: 20121114, end: 20131014

REACTIONS (23)
  - Leukopenia [Unknown]
  - Rash generalised [Unknown]
  - Abdominal distension [Unknown]
  - Dyspepsia [Unknown]
  - Gastrointestinal disorder [Unknown]
  - Respiratory disorder [Unknown]
  - Headache [Unknown]
  - Pain [Unknown]
  - White blood cell count decreased [Unknown]
  - Nausea [Unknown]
  - Vomiting [Unknown]
  - Dysgeusia [Unknown]
  - Local swelling [Unknown]
  - Pain [Unknown]
  - Swelling [Unknown]
  - Local swelling [Unknown]
  - Hypoaesthesia [Unknown]
  - Rash [Recovering/Resolving]
  - Anaemia [Unknown]
  - White blood cell count decreased [Recovering/Resolving]
  - Nausea [Unknown]
  - Dysgeusia [Unknown]
  - Parosmia [Unknown]
